FAERS Safety Report 8927947 (Version 1)
Quarter: 2012Q4

REPORT INFORMATION
  Report Type: Spontaneous
  Country: US (occurrence: None)
  Receive Date: 20121126
  Receipt Date: 20121126
  Transmission Date: 20130627
  Serious: Yes (Death, Other)
  Sender: FDA-Public Use
  Company Number: None

PATIENT
  Age: 63 Year
  Sex: Male
  Weight: 66.23 kg

DRUGS (1)
  1. AMITRIPTYLINE [Suspect]
     Dosage: 2-4 tablets daily po
     Route: 048
     Dates: start: 20110101, end: 20120214

REACTIONS (6)
  - Drug dependence [None]
  - Weight decreased [None]
  - Sleep apnoea syndrome [None]
  - Decreased interest [None]
  - Stress [None]
  - Completed suicide [None]
